FAERS Safety Report 5158648-5 (Version None)
Quarter: 2006Q4

REPORT INFORMATION
  Report Type: 
  Country: None (occurrence: None)
  Receive Date: 20061128
  Receipt Date: 20060713
  Transmission Date: 20070319
  Serious: Yes (Hospitalization, Other)
  Sender: FDA-Public Use
  Company Number: IT-ELI_LILLY_AND_COMPANY-IT200607003129

PATIENT
  Age: 71 Year
  Sex: Female

DRUGS (3)
  1. ALIMTA [Suspect]
     Indication: LUNG NEOPLASM MALIGNANT
     Dosage: UNK, UNK
     Dates: start: 20060501, end: 20060501
  2. ALIMTA [Suspect]
     Dosage: 500 MG, OTHER
     Route: 042
     Dates: start: 20060612, end: 20060612
  3. VITAMIN B-12 [Concomitant]
     Indication: PROPHYLAXIS

REACTIONS (4)
  - NEUTROPENIA [None]
  - PLATELET COUNT DECREASED [None]
  - RENAL FAILURE ACUTE [None]
  - THROMBOCYTOPENIA [None]
